FAERS Safety Report 9678055 (Version 2)
Quarter: 2013Q4

REPORT INFORMATION
  Report Type: Spontaneous
  Country: TR (occurrence: TR)
  Receive Date: 20131108
  Receipt Date: 20131120
  Transmission Date: 20140711
  Serious: Yes (Hospitalization)
  Sender: FDA-Public Use
  Company Number: TR-SA-2013SA112014

PATIENT
  Age: 44 Year
  Sex: Female

DRUGS (4)
  1. RIFAMPICIN [Suspect]
     Indication: LYMPH NODE TUBERCULOSIS
     Route: 065
  2. ISONIAZIDE [Concomitant]
     Indication: LYMPH NODE TUBERCULOSIS
  3. PYRAZINAMIDE [Concomitant]
     Indication: LYMPH NODE TUBERCULOSIS
  4. ETHAMBUTOL [Concomitant]
     Indication: LYMPH NODE TUBERCULOSIS

REACTIONS (18)
  - Adrenocortical insufficiency acute [Recovered/Resolved]
  - Malaise [Recovered/Resolved]
  - Nausea [Recovered/Resolved]
  - Vomiting [Recovered/Resolved]
  - Depressed level of consciousness [Recovered/Resolved]
  - Blood pressure decreased [Recovered/Resolved]
  - Heart rate increased [Recovered/Resolved]
  - Body temperature increased [Recovered/Resolved]
  - Mucosal discolouration [Recovered/Resolved]
  - Mucosal dryness [Recovered/Resolved]
  - Acute prerenal failure [Unknown]
  - Blood urea increased [Unknown]
  - Blood creatinine increased [Recovered/Resolved]
  - Hyponatraemia [Not Recovered/Not Resolved]
  - Hypokalaemia [Unknown]
  - Tri-iodothyronine decreased [Unknown]
  - Thyroxine free decreased [Unknown]
  - Blood thyroid stimulating hormone decreased [Unknown]
